FAERS Safety Report 10038412 (Version 1)
Quarter: 2014Q1

REPORT INFORMATION
  Report Type: Spontaneous
  Country: US (occurrence: US)
  Receive Date: 20140326
  Receipt Date: 20140326
  Transmission Date: 20141002
  Serious: Yes (Hospitalization)
  Sender: FDA-Public Use
  Company Number: US-009507513-1403USA009398

PATIENT
  Age: 25 Year
  Sex: Female

DRUGS (1)
  1. DULERA [Suspect]
     Indication: ASTHMA
     Dosage: DOSE 100/5 MCG FREQUENCY: 2 INHALATIONS, TWICE DAILY
     Route: 055

REACTIONS (2)
  - Tachycardia [Unknown]
  - Exposure during pregnancy [Unknown]
